FAERS Safety Report 6176768-3 (Version None)
Quarter: 2009Q2

REPORT INFORMATION
  Report Type: 
  Country: None (occurrence: None)
  Receive Date: 20090501
  Receipt Date: 20090421
  Transmission Date: 20091009
  Serious: Yes (Hospitalization)
  Sender: FDA-Public Use
  Company Number: US-MEDIMMUNE-MEDI-0008115

PATIENT
  Sex: Male
  Weight: 9.08 kg

DRUGS (7)
  1. SYNAGIS [Suspect]
     Indication: PREMATURE BABY
     Route: 030
     Dates: start: 20081112, end: 20081212
  2. SYNAGIS [Suspect]
     Indication: CHRONIC RESPIRATORY DISEASE
     Route: 030
     Dates: start: 20081112
  3. SYNAGIS [Suspect]
     Route: 030
     Dates: start: 20090113
  4. SYNAGIS [Suspect]
     Route: 030
     Dates: start: 20090213
  5. SYNAGIS [Suspect]
     Route: 030
     Dates: start: 20090313
  6. AMOXIL [Concomitant]
     Dates: start: 20090312, end: 20090322
  7. FLAGYL [Concomitant]
     Dates: start: 20090312, end: 20090322

REACTIONS (4)
  - BACTERIAL TRACHEITIS [None]
  - BRONCHIAL SECRETION RETENTION [None]
  - CONVULSION [None]
  - PYREXIA [None]
